FAERS Safety Report 10021406 (Version 1)
Quarter: 2014Q1

REPORT INFORMATION
  Report Type: Spontaneous
  Country: US (occurrence: None)
  Receive Date: 20140318
  Receipt Date: 20140318
  Transmission Date: 20141002
  Serious: Yes (Life-Threatening, Other)
  Sender: FDA-Public Use
  Company Number: None

PATIENT
  Age: 55 Year
  Sex: Female
  Weight: 79.38 kg

DRUGS (2)
  1. PRILOSEC OTC [Suspect]
     Indication: NASAL OEDEMA
     Dates: start: 20140312, end: 20140316
  2. PRILOSEC OTC [Suspect]
     Indication: MULTIPLE ALLERGIES
     Dates: start: 20140312, end: 20140316

REACTIONS (3)
  - Crying [None]
  - Suicidal ideation [None]
  - Distractibility [None]
